FAERS Safety Report 17691099 (Version 4)
Quarter: 2020Q3

REPORT INFORMATION
  Report Type: Report from Study
  Country: US (occurrence: US)
  Receive Date: 20200422
  Receipt Date: 20200812
  Transmission Date: 20201102
  Serious: Yes (Hospitalization)
  Sender: FDA-Public Use
  Company Number: NVSC2020US106323

PATIENT
  Sex: Male

DRUGS (1)
  1. COSENTYX [Suspect]
     Active Substance: SECUKINUMAB
     Indication: PRODUCT USED FOR UNKNOWN INDICATION
     Dosage: 300 MG/KG, QMO
     Route: 058

REACTIONS (8)
  - Influenza [Unknown]
  - Pancreatitis [Unknown]
  - Secretion discharge [Unknown]
  - Product dose omission issue [Unknown]
  - Pyrexia [Unknown]
  - Stress [Unknown]
  - Gallbladder disorder [Unknown]
  - Condition aggravated [Unknown]
